FAERS Safety Report 10606145 (Version 2)
Quarter: 2015Q1

REPORT INFORMATION
  Report Type: Report from Study
  Country: DE (occurrence: FR)
  Receive Date: 20141125
  Receipt Date: 20150128
  Transmission Date: 20150720
  Serious: Yes (Death, Hospitalization, Other)
  Sender: FDA-Public Use
  Company Number: FR-ACTELION-A-CH2014-108203

PATIENT
  Age: 64 Year
  Sex: Male
  Weight: 70 kg

DRUGS (4)
  1. VENTAVIS [Suspect]
     Active Substance: ILOPROST
     Indication: PULMONARY HYPERTENSION
     Dosage: 5 MCG, Q4HRS
     Route: 055
     Dates: start: 20130827
  2. DUOPLAVIN [Suspect]
     Active Substance: ASPIRIN\CLOPIDOGREL
     Indication: PRODUCT USED FOR UNKNOWN INDICATION
     Route: 065
  3. SPIRIVA [Concomitant]
     Active Substance: TIOTROPIUM BROMIDE MONOHYDRATE
  4. LYRICA [Concomitant]
     Active Substance: PREGABALIN

REACTIONS (12)
  - Abdominal distension [Unknown]
  - Peripheral artery stenosis [Unknown]
  - Peripheral venous disease [Unknown]
  - Epistaxis [Unknown]
  - Arterial injury [Unknown]
  - Cholestasis [Unknown]
  - Labelled drug-drug interaction medication error [Unknown]
  - Pain in extremity [Unknown]
  - Renal failure [Unknown]
  - Off label use [Unknown]
  - Death [Fatal]
  - Dyspnoea exertional [Unknown]

NARRATIVE: CASE EVENT DATE: 20131125
